FAERS Safety Report 17807562 (Version 1)
Quarter: 2020Q2

REPORT INFORMATION
  Report Type: Spontaneous
  Country: US (occurrence: US)
  Receive Date: 20200519
  Receipt Date: 20200519
  Transmission Date: 20200714
  Serious: No
  Sender: FDA-Public Use
  Company Number: None

PATIENT
  Age: 79 Year
  Sex: Female
  Weight: 62.8 kg

DRUGS (16)
  1. FLUOXETINE [Concomitant]
     Active Substance: FLUOXETINE HYDROCHLORIDE
  2. MEMANTINE. [Concomitant]
     Active Substance: MEMANTINE
  3. CEFEPIME [Concomitant]
     Active Substance: CEFEPIME HYDROCHLORIDE
  4. APAP [Concomitant]
     Active Substance: ACETAMINOPHEN
  5. MORPHINE [Concomitant]
     Active Substance: MORPHINE
  6. PRAVASTATIN. [Concomitant]
     Active Substance: PRAVASTATIN
  7. CALCITONIN [Concomitant]
     Active Substance: CALCITONIN
  8. MAGNESIUM SULFATE. [Concomitant]
     Active Substance: MAGNESIUM SULFATE
  9. EZETIMIBE. [Concomitant]
     Active Substance: EZETIMIBE
  10. DOCUSATE [Concomitant]
     Active Substance: DOCUSATE
  11. KCL [Concomitant]
     Active Substance: POTASSIUM CHLORIDE
  12. CA/VIT D [Concomitant]
  13. RIVAROXABAN [Concomitant]
     Active Substance: RIVAROXABAN
  14. FAMOTIDINE. [Concomitant]
     Active Substance: FAMOTIDINE
  15. REMDESIVIR 100 MG/20 ML IV (EUA DRUG) [Suspect]
     Active Substance: REMDESIVIR
     Indication: SARS-COV-2 TEST POSITIVE
     Route: 042
     Dates: start: 20200516
  16. QUETIAPINE. [Concomitant]
     Active Substance: QUETIAPINE

REACTIONS (7)
  - Atrial fibrillation [None]
  - PO2 decreased [None]
  - Glomerular filtration rate decreased [None]
  - Blood creatinine increased [None]
  - Oxygen saturation decreased [None]
  - Blood pressure systolic increased [None]
  - Increased bronchial secretion [None]

NARRATIVE: CASE EVENT DATE: 20200519
